FAERS Safety Report 25872432 (Version 2)
Quarter: 2025Q4

REPORT INFORMATION
  Report Type: Spontaneous
  Country: TR (occurrence: TR)
  Receive Date: 20251002
  Receipt Date: 20251006
  Transmission Date: 20260118
  Serious: Yes (Other)
  Sender: ROCHE
  Company Number: TR-ROCHE-10000394901

PATIENT
  Age: 3 Decade
  Sex: Male

DRUGS (2)
  1. TOCILIZUMAB [Suspect]
     Active Substance: TOCILIZUMAB
     Indication: Still^s disease
     Route: 042
  2. ADALIMUMAB [Concomitant]
     Active Substance: ADALIMUMAB

REACTIONS (2)
  - Hypokalaemia [Recovered/Resolved]
  - Paralysis [Recovered/Resolved]
